FAERS Safety Report 11150848 (Version 2)
Quarter: 2015Q2

REPORT INFORMATION
  Report Type: Spontaneous
  Country: FR (occurrence: None)
  Receive Date: 20150528
  Receipt Date: 20150617
  Transmission Date: 20150821
  Serious: Yes (Death, Other)
  Sender: FDA-Public Use
  Company Number: 2015-11408

PATIENT
  Age: 80 Year
  Sex: Female

DRUGS (2)
  1. OXYBUPROCAINE (OXYBUPROCAINE) [Concomitant]
  2. EYLEA [Suspect]
     Active Substance: AFLIBERCEPT
     Indication: NEOVASCULAR AGE-RELATED MACULAR DEGENERATION
     Dosage: 2 MG, ONCE, LEFT EYE
     Route: 047
     Dates: start: 20140507, end: 20140507

REACTIONS (3)
  - Pulmonary sepsis [None]
  - Death [None]
  - Cardiac failure [None]

NARRATIVE: CASE EVENT DATE: 20150203
